FAERS Safety Report 8228608-6 (Version None)
Quarter: 2012Q1

REPORT INFORMATION
  Report Type: 
  Country: None (occurrence: None)
  Receive Date: 20120322
  Receipt Date: 20110607
  Transmission Date: 20120608
  Serious: Yes (Hospitalization)
  Sender: FDA-Public Use
  Company Number: US-BRISTOL-MYERS SQUIBB COMPANY-15602527

PATIENT
  Age: 65 Year
  Sex: Male

DRUGS (4)
  1. ALOXI [Concomitant]
     Indication: PREMEDICATION
  2. DEXAMETHASONE [Concomitant]
     Indication: PREMEDICATION
  3. ERBITUX [Suspect]
     Indication: LUNG NEOPLASM MALIGNANT
     Dosage: 250MG/M2 WEEKLY.ROUTE LEFT CHEST PORT A CATH. LAST INF:18MG
     Route: 042
     Dates: start: 20110209
  4. BENADRYL [Concomitant]
     Indication: PREMEDICATION

REACTIONS (1)
  - ANAPHYLACTIC REACTION [None]
